FAERS Safety Report 23314473 (Version 4)
Quarter: 2024Q3

REPORT INFORMATION
  Report Type: Spontaneous
  Country: US (occurrence: US)
  Receive Date: 20231219
  Receipt Date: 20240812
  Transmission Date: 20241017
  Serious: No
  Sender: PFIZER
  Company Number: US-PFIZER INC-202300130476

PATIENT
  Age: 67 Year
  Sex: Female
  Weight: 52.62 kg

DRUGS (6)
  1. NICOTROL [Suspect]
     Active Substance: NICOTINE
     Indication: Smoking cessation therapy
     Dosage: UNK
  2. NICOTROL [Suspect]
     Active Substance: NICOTINE
     Dosage: 20 TIMES
  3. NICOTROL [Suspect]
     Active Substance: NICOTINE
     Dosage: ONE SPRAY IN EACH NOSTRIL EVERY 2 HOURS
     Route: 045
  4. NICOTROL [Suspect]
     Active Substance: NICOTINE
     Dosage: 30 TIMES A DAY OR MORE
  5. NICOTROL [Suspect]
     Active Substance: NICOTINE
     Dosage: EVERY HALF HOUR OR EVERY 20 MINUTES
  6. NICOTROL [Suspect]
     Active Substance: NICOTINE
     Dosage: 4-5 TIMES A DAY

REACTIONS (4)
  - Intentional product misuse [Unknown]
  - Therapeutic product effect incomplete [Recovered/Resolved]
  - Depressed mood [Not Recovered/Not Resolved]
  - Product dose omission issue [Unknown]
